FAERS Safety Report 5324589-3 (Version None)
Quarter: 2007Q2

REPORT INFORMATION
  Report Type: 
  Country: None (occurrence: None)
  Receive Date: 20070514
  Receipt Date: 20070502
  Transmission Date: 20071010
  Serious: Yes (Other)
  Sender: FDA-Public Use
  Company Number: US-PFIZER INC-2007037102

PATIENT
  Sex: Female
  Weight: 82.6 kg

DRUGS (1)
  1. LYRICA [Suspect]
     Indication: NEURALGIA
     Dates: start: 20061011, end: 20061031

REACTIONS (4)
  - GASTRIC DISORDER [None]
  - POLLAKIURIA [None]
  - POLYP [None]
  - WEIGHT DECREASED [None]
